FAERS Safety Report 8567790-8 (Version None)
Quarter: 2012Q3

REPORT INFORMATION
  Report Type: 
  Country: None (occurrence: None)
  Receive Date: 20120803
  Receipt Date: 20120723
  Transmission Date: 20120928
  Serious: No
  Sender: FDA-Public Use
  Company Number: US-B.I. PHARMACEUTICALS,INC./RIDGEFIELD-2012-BP-16604BP

PATIENT
  Sex: Male

DRUGS (2)
  1. COMBIVENT [Suspect]
     Indication: EMPHYSEMA
     Route: 055
  2. FLUTICASONE PROPIONATE [Concomitant]
     Indication: EMPHYSEMA

REACTIONS (1)
  - DRUG INEFFECTIVE [None]
